FAERS Safety Report 7888129-7 (Version None)
Quarter: 2011Q4

REPORT INFORMATION
  Report Type: 
  Country: None (occurrence: None)
  Receive Date: 20111103
  Receipt Date: 20111021
  Transmission Date: 20120403
  Serious: Yes (Hospitalization)
  Sender: FDA-Public Use
  Company Number: US-BAYER-2011-027432

PATIENT
  Age: 20 Year
  Sex: Female
  Weight: 91 kg

DRUGS (3)
  1. PHENTERMINE [Concomitant]
     Dosage: UNK
     Dates: start: 20080501
  2. PHENTERMINE [Concomitant]
     Dosage: UNK
     Dates: start: 20080601
  3. YAZ [Suspect]
     Indication: CONTRACEPTION
     Dosage: UNK
     Dates: start: 20081101, end: 20091001

REACTIONS (7)
  - PAIN [None]
  - CHOLECYSTITIS CHRONIC [None]
  - GALLBLADDER CHOLESTEROLOSIS [None]
  - NAUSEA [None]
  - VOMITING [None]
  - CHOLELITHIASIS [None]
  - ABDOMINAL PAIN UPPER [None]
